FAERS Safety Report 23589268 (Version 1)
Quarter: 2024Q1

REPORT INFORMATION
  Report Type: Spontaneous
  Country: US (occurrence: US)
  Receive Date: 20240303
  Receipt Date: 20240303
  Transmission Date: 20240409
  Serious: No
  Sender: FDA-Public Use
  Company Number: US-BAUSCHBL-2024BNL002259

PATIENT
  Age: 74 Year
  Sex: Female
  Weight: 52.16 kg

DRUGS (2)
  1. BIOTRUE HYDRATION BOOST [Suspect]
     Active Substance: GLYCERIN
     Indication: Dry eye
     Dosage: 1 DROP INTO EACH EYE 2-3 TIMES A DAY
     Route: 047
     Dates: start: 202312, end: 20240219
  2. DORZOLAMIDE HYDROCHLORIDE [Suspect]
     Active Substance: DORZOLAMIDE HYDROCHLORIDE
     Indication: Exfoliation glaucoma
     Dosage: 1 DROP INTO THE RIGHT EYE TWICE DAILY, FOR AT LEAST 4-5 YEARS
     Route: 047

REACTIONS (2)
  - Muscle twitching [Unknown]
  - Product use complaint [Unknown]

NARRATIVE: CASE EVENT DATE: 20240101
